FAERS Safety Report 14211718 (Version 3)
Quarter: 2018Q1

REPORT INFORMATION
  Report Type: Spontaneous
  Country: US (occurrence: US)
  Receive Date: 20171121
  Receipt Date: 20180125
  Transmission Date: 20180508
  Serious: Yes (Death)
  Sender: FDA-Public Use
  Company Number: US-TAIHO ONCOLOGY INC-EU-2017-01445

PATIENT
  Sex: Male

DRUGS (7)
  1. ZOFRAN [Concomitant]
     Active Substance: ONDANSETRON HYDROCHLORIDE
     Dosage: NI
  2. PEPCID [Concomitant]
     Active Substance: FAMOTIDINE
     Dosage: NI
  3. AVASTIN [Concomitant]
     Active Substance: BEVACIZUMAB
     Dosage: NI
  4. LORAZEPAM. [Concomitant]
     Active Substance: LORAZEPAM
     Dosage: NI
  5. LASIX [Concomitant]
     Active Substance: FUROSEMIDE
     Dosage: NI
  6. LONSURF [Suspect]
     Active Substance: TIPIRACIL HYDROCHLORIDE\TRIFLURIDINE
     Indication: RECTAL CANCER METASTATIC
     Route: 048
     Dates: start: 20170505
  7. DILAUDID [Concomitant]
     Active Substance: HYDROMORPHONE HYDROCHLORIDE
     Dosage: NI

REACTIONS (2)
  - Diarrhoea [Not Recovered/Not Resolved]
  - Disease progression [Fatal]

NARRATIVE: CASE EVENT DATE: 2017
